FAERS Safety Report 8863099 (Version 2)
Quarter: 2012Q4

REPORT INFORMATION
  Report Type: 
  Country: US (occurrence: US)
  Receive Date: 20121026
  Receipt Date: 20121206
  Transmission Date: 20130627
  Serious: Yes (Hospitalization)
  Sender: FDA-Public Use
  Company Number: US-AMGEN-USASP2012064089

PATIENT

DRUGS (6)
  1. NEUPOGEN [Suspect]
     Indication: DEMENTIA ALZHEIMER^S TYPE
     Dosage: 10 mug/kg, qd
     Route: 058
  2. ARICEPT [Concomitant]
     Dosage: 10 mg, qd
  3. NAMENDA [Concomitant]
     Dosage: 10 mg, bid
  4. SYMMETREL [Concomitant]
     Dosage: 100 mg, bid
  5. ADDERALL [Concomitant]
     Dosage: 10 mg, tid
  6. EFFEXOR [Concomitant]
     Dosage: 150 mg, UNK

REACTIONS (6)
  - Headache [Recovered/Resolved]
  - Back pain [Recovered/Resolved]
  - White blood cell count increased [Recovered/Resolved]
  - Pain [Recovered/Resolved]
  - Nausea [Unknown]
  - Myalgia [Recovered/Resolved]
